FAERS Safety Report 8304327-2 (Version None)
Quarter: 2012Q2

REPORT INFORMATION
  Report Type: 
  Country: None (occurrence: None)
  Receive Date: 20120423
  Receipt Date: 20120423
  Transmission Date: 20120825
  Serious: Yes (Other)
  Sender: FDA-Public Use
  Company Number: None

PATIENT
  Age: 44 Year
  Sex: Female
  Weight: 95.254 kg

DRUGS (1)
  1. LOESTRIN FE 1/20 [Suspect]
     Indication: MENORRHAGIA
     Route: 048
     Dates: start: 20111226, end: 20120422

REACTIONS (5)
  - CONDITION AGGRAVATED [None]
  - HAEMORRHAGE [None]
  - POLYMENORRHOEA [None]
  - PAIN [None]
  - MIGRAINE [None]
